FAERS Safety Report 8173185-1 (Version None)
Quarter: 2012Q1

REPORT INFORMATION
  Report Type: 
  Country: None (occurrence: None)
  Receive Date: 20120223
  Receipt Date: 20120215
  Transmission Date: 20120608
  Serious: Yes (Disabling, Other)
  Sender: FDA-Public Use
  Company Number: ACO_28142_2011

PATIENT
  Age: 65 Year
  Sex: Male

DRUGS (3)
  1. COPAXONE (GLATIRAMER ACETATE0 [Concomitant]
  2. MELATONIN (MELATONIN) [Concomitant]
  3. AMPYRA [Suspect]
     Indication: GAIT DISTURBANCE
     Dosage: 10 MG, Q 12 HRS, ORAL
     Route: 048
     Dates: start: 20111001, end: 20111003

REACTIONS (1)
  - ABASIA [None]
